FAERS Safety Report 5720378-6 (Version None)
Quarter: 2008Q2

REPORT INFORMATION
  Report Type: 
  Country: None (occurrence: None)
  Receive Date: 20080428
  Receipt Date: 20080416
  Transmission Date: 20081010
  Serious: Yes (Hospitalization)
  Sender: FDA-Public Use
  Company Number: JP-PFIZER INC-2008034090

PATIENT
  Sex: Male

DRUGS (5)
  1. ZYVOX [Suspect]
     Indication: ENTEROCOLITIS
     Route: 048
  2. HERBESSER R [Suspect]
     Indication: HYPERTENSION
     Route: 048
  3. MICARDIS [Suspect]
     Indication: HYPERTENSION
     Route: 048
  4. ADALAT [Suspect]
     Indication: HYPERTENSION
     Route: 048
  5. PLETAL [Suspect]
     Indication: THROMBOSIS PROPHYLAXIS
     Route: 048

REACTIONS (1)
  - PORTAL VENOUS GAS [None]
